FAERS Safety Report 21499014 (Version 1)
Quarter: 2022Q4

REPORT INFORMATION
  Report Type: Spontaneous
  Country: US (occurrence: None)
  Receive Date: 20221022
  Receipt Date: 20221022
  Transmission Date: 20230113
  Serious: Yes (Disabling)
  Sender: FDA-Public Use
  Company Number: None

PATIENT
  Age: 30 Year
  Sex: Female
  Weight: 45 kg

DRUGS (2)
  1. KYLEENA [Suspect]
     Active Substance: LEVONORGESTREL
  2. LISDEXAMFETAMINE DIMESYLATE [Concomitant]
     Active Substance: LISDEXAMFETAMINE DIMESYLATE

REACTIONS (21)
  - Feeling abnormal [None]
  - Confusional state [None]
  - Vision blurred [None]
  - Decreased appetite [None]
  - Alopecia [None]
  - Menopausal symptoms [None]
  - Muscle spasms [None]
  - Mood swings [None]
  - Depression [None]
  - Asthenia [None]
  - Fungal infection [None]
  - Vaginal haemorrhage [None]
  - Complication associated with device [None]
  - Heavy menstrual bleeding [None]
  - Madarosis [None]
  - Madarosis [None]
  - Ocular icterus [None]
  - Underweight [None]
  - Malnutrition [None]
  - Insomnia [None]
  - Fatigue [None]

NARRATIVE: CASE EVENT DATE: 20221020
